FAERS Safety Report 23742026 (Version 1)
Quarter: 2024Q2

REPORT INFORMATION
  Report Type: Spontaneous
  Country: HR (occurrence: HR)
  Receive Date: 20240415
  Receipt Date: 20240415
  Transmission Date: 20240715
  Serious: Yes (Death, Other)
  Sender: FDA-Public Use
  Company Number: HR-ASTELLAS-2024US010562

PATIENT
  Age: 45 Year
  Sex: Female

DRUGS (2)
  1. PADCEV [Suspect]
     Active Substance: ENFORTUMAB VEDOTIN-EJFV
     Indication: Transitional cell carcinoma
     Dosage: 80 MG, CYCLIC (DOSE 1.25 MG/KG, TOTAL 80 MG APPLIED ON THE 1ST, 8TH, 15TH DAY)
     Route: 065
     Dates: start: 20230807
  2. PADCEV [Suspect]
     Active Substance: ENFORTUMAB VEDOTIN-EJFV
     Dosage: UNK, CYCLIC (CONDUCTED 3RD-5TH THERAPY CYCLE)
     Route: 065
     Dates: start: 202310, end: 202401

REACTIONS (7)
  - Pulmonary embolism [Fatal]
  - Malignant neoplasm progression [Recovering/Resolving]
  - Fatigue [Unknown]
  - Alopecia [Unknown]
  - Pruritus [Unknown]
  - Rash maculo-papular [Unknown]
  - Pain [Recovered/Resolved]

NARRATIVE: CASE EVENT DATE: 20240204
